FAERS Safety Report 10392008 (Version 1)
Quarter: 2014Q3

REPORT INFORMATION
  Report Type: Report from Study
  Country: SG (occurrence: SG)
  Receive Date: 20140819
  Receipt Date: 20140819
  Transmission Date: 20150326
  Serious: Yes (Hospitalization)
  Sender: FDA-Public Use
  Company Number: PHHO2014SG010674

PATIENT
  Age: 46 Year
  Sex: Female
  Weight: 63 kg

DRUGS (7)
  1. CHLORHEXIDINE [Concomitant]
     Active Substance: CHLORHEXIDINE
     Indication: WISDOM TEETH REMOVAL
     Dosage: 15 ML, QID
     Route: 048
     Dates: start: 20140709
  2. COMPARATOR LETROZOLE [Suspect]
     Active Substance: LETROZOLE
     Indication: BREAST CANCER
     Dosage: 2.5 MG, OM
     Route: 048
     Dates: start: 20140718
  3. CO-AMOXICLAV [Concomitant]
     Active Substance: AMOXICILLIN\CLAVULANIC ACID
     Indication: WISDOM TEETH REMOVAL
     Dosage: 625 MG, BID
     Route: 048
     Dates: start: 20140709, end: 20140716
  4. LEKOVIT CA [Concomitant]
     Active Substance: CALCIUM CARBONATE\CHOLECALCIFEROL
     Indication: SUPPLEMENTATION THERAPY
     Dosage: 2 DF, QD
     Route: 048
     Dates: start: 20140719
  5. LEE011 [Suspect]
     Active Substance: INVESTIGATIONAL PRODUCT
     Indication: BREAST CANCER
     Dosage: 600 MG, OM
     Route: 048
     Dates: start: 20140718, end: 20140731
  6. CALCIUM CARBONATE W/VITAMIN D      /00944201/ [Concomitant]
     Indication: SUPPLEMENTATION THERAPY
     Dosage: 450 MG, 2 TABLETS OM
     Route: 048
     Dates: start: 20140719
  7. ETORICOXIB [Concomitant]
     Active Substance: ETORICOXIB
     Indication: WISDOM TEETH REMOVAL
     Dosage: 120 MG, QD
     Route: 048
     Dates: start: 20140709, end: 20140713

REACTIONS (2)
  - Febrile neutropenia [Recovered/Resolved]
  - Transaminases increased [Recovering/Resolving]

NARRATIVE: CASE EVENT DATE: 20140802
